FAERS Safety Report 23799064 (Version 3)
Quarter: 2025Q3

REPORT INFORMATION
  Report Type: Report from Study
  Country: US (occurrence: US)
  Receive Date: 20240430
  Receipt Date: 20250819
  Transmission Date: 20251020
  Serious: Yes (Hospitalization)
  Sender: ROCHE
  Company Number: US-ROCHE-3095419

PATIENT
  Age: 51 Year
  Sex: Female
  Weight: 138.35 kg

DRUGS (6)
  1. RITUXAN [Suspect]
     Active Substance: RITUXIMAB
     Indication: Anti-neutrophil cytoplasmic antibody positive vasculitis
     Dosage: DATES OF TREATMENT: 20/FEB/2022, 27/FEB/2022 AND 06/MAR/2022.
     Route: 042
     Dates: start: 20220205
  2. RITUXAN [Suspect]
     Active Substance: RITUXIMAB
     Indication: Arteritis
     Dosage: REPEAT 1000 MG EVERY 6 MONTHS THEREAFTER
     Route: 042
  3. RITUXAN [Suspect]
     Active Substance: RITUXIMAB
     Route: 065
  4. RITUXAN [Suspect]
     Active Substance: RITUXIMAB
     Route: 042
  5. DULOXETINE [Concomitant]
     Active Substance: DULOXETINE
     Route: 048
  6. CLOBETASOL [Concomitant]
     Active Substance: CLOBETASOL
     Indication: Eczema
     Route: 061

REACTIONS (11)
  - Seasonal allergy [Not Recovered/Not Resolved]
  - Cholelithiasis [Recovered/Resolved]
  - Off label use [Unknown]
  - Fibromyalgia [Not Recovered/Not Resolved]
  - Vitamin D decreased [Unknown]
  - Glycosylated haemoglobin increased [Unknown]
  - Memory impairment [Not Recovered/Not Resolved]
  - Pain [Not Recovered/Not Resolved]
  - Back pain [Unknown]
  - Gastrooesophageal reflux disease [Unknown]
  - Overweight [Unknown]

NARRATIVE: CASE EVENT DATE: 20220205
